FAERS Safety Report 11467089 (Version 1)
Quarter: 2015Q3

REPORT INFORMATION
  Report Type: Spontaneous
  Country: DK (occurrence: DK)
  Receive Date: 20150908
  Receipt Date: 20150908
  Transmission Date: 20151125
  Serious: Yes (Death)
  Sender: FDA-Public Use
  Company Number: DK-ASTRAZENECA-2015SE83967

PATIENT
  Age: 80 Year
  Sex: Male

DRUGS (10)
  1. BRILIQUE [Suspect]
     Active Substance: TICAGRELOR
     Indication: THROMBOSIS PROPHYLAXIS
     Route: 048
     Dates: start: 20141130
  2. KALEORID [Concomitant]
     Active Substance: POTASSIUM CHLORIDE
     Indication: MINERAL SUPPLEMENTATION
     Route: 048
  3. ATORVASTATIN ^PFIZER^ [Concomitant]
     Active Substance: ATORVASTATIN
     Indication: ADVERSE DRUG REACTION
  4. SEEBRI BREEZHALER [Concomitant]
     Active Substance: GLYCOPYRROLATE
     Indication: CHRONIC OBSTRUCTIVE PULMONARY DISEASE
     Route: 055
  5. SYMBICORT FORTE TURBOHALER [Concomitant]
     Indication: CHRONIC OBSTRUCTIVE PULMONARY DISEASE
     Route: 055
  6. FINASTERID ^ACTAVIS^ [Concomitant]
     Indication: DYSURIA
     Route: 048
  7. PANTOPRAZOL ^PENSA^ [Concomitant]
     Indication: GASTRIC ULCER
     Route: 048
  8. BERODUAL [Concomitant]
     Active Substance: FENOTEROL HYDROBROMIDE\IPRATROPIUM BROMIDE
     Indication: CHRONIC OBSTRUCTIVE PULMONARY DISEASE
     Route: 055
  9. CARVEDILOL ^HEXAL^ [Concomitant]
     Indication: CARDIAC DISORDER
     Route: 048
  10. ZOPICLONE ^ACTAVIS^ [Concomitant]
     Indication: INSOMNIA
     Route: 048

REACTIONS (1)
  - Post procedural haemorrhage [Fatal]

NARRATIVE: CASE EVENT DATE: 20150611
